FAERS Safety Report 4598551-2 (Version None)
Quarter: 2005Q1

REPORT INFORMATION
  Report Type: 
  Country: None (occurrence: None)
  Receive Date: 20050304
  Receipt Date: 20041215
  Transmission Date: 20050727
  Serious: Yes (Hospitalization)
  Sender: FDA-Public Use
  Company Number: JP-ROCHE-389475

PATIENT
  Age: 64 Year
  Sex: Male

DRUGS (2)
  1. PEGASYS [Suspect]
     Route: 058
     Dates: start: 20040301, end: 20040920
  2. RIBAVIRIN [Concomitant]
     Dates: start: 20020312, end: 20040826

REACTIONS (2)
  - INFUSION RELATED REACTION [None]
  - LOSS OF CONSCIOUSNESS [None]
